FAERS Safety Report 4687031-1 (Version None)
Quarter: 2005Q2

REPORT INFORMATION
  Report Type: 
  Country: None (occurrence: None)
  Receive Date: 20050607
  Receipt Date: 20050526
  Transmission Date: 20051028
  Serious: Yes (Other)
  Sender: FDA-Public Use
  Company Number: WAES 0506USA00412

PATIENT
  Age: 49 Year
  Sex: Female

DRUGS (2)
  1. DECADRON [Suspect]
     Indication: MULTIPLE MYELOMA
     Dosage: 20 MG/M[2]/DAILY, PO
     Route: 048
  2. THALIDOMIDE [Suspect]
     Indication: MULTIPLE MYELOMA
     Dosage: 200 MG/DAILY

REACTIONS (2)
  - PULMONARY EMBOLISM [None]
  - RENAL VEIN THROMBOSIS [None]
